FAERS Safety Report 15553464 (Version 1)
Quarter: 2018Q4

REPORT INFORMATION
  Report Type: Spontaneous
  Country: PL (occurrence: PL)
  Receive Date: 20181026
  Receipt Date: 20181026
  Transmission Date: 20190205
  Serious: Yes (Other)
  Sender: FDA-Public Use
  Company Number: PL-ROCHE-2200067

PATIENT
  Sex: Female

DRUGS (4)
  1. VEMURAFENIB. [Suspect]
     Active Substance: VEMURAFENIB
     Indication: MALIGNANT MELANOMA
     Route: 065
  2. VEMURAFENIB. [Suspect]
     Active Substance: VEMURAFENIB
     Dosage: DAILY DOSE 1920 MG
     Route: 065
     Dates: start: 2017
  3. NIVOLUMAB [Concomitant]
     Active Substance: NIVOLUMAB
     Route: 065
     Dates: start: 20180131
  4. COBIMETINIB. [Suspect]
     Active Substance: COBIMETINIB
     Indication: MALIGNANT MELANOMA
     Dosage: 60 MG DAILY FOR 21 DAYS
     Route: 065
     Dates: start: 2017

REACTIONS (8)
  - Neoplasm [Unknown]
  - Skin mass [Unknown]
  - Rash generalised [Recovering/Resolving]
  - Dyspnoea at rest [Unknown]
  - Condition aggravated [Unknown]
  - Arthralgia [Unknown]
  - Pruritus [Recovered/Resolved]
  - Rash [Unknown]

NARRATIVE: CASE EVENT DATE: 2017
